FAERS Safety Report 13905622 (Version 3)
Quarter: 2018Q2

REPORT INFORMATION
  Report Type: Report from Study
  Country: US (occurrence: US)
  Receive Date: 20170825
  Receipt Date: 20180512
  Transmission Date: 20180711
  Serious: No
  Sender: FDA-Public Use
  Company Number: PHEH2017US025878

PATIENT
  Age: 77 Year
  Sex: Female

DRUGS (1)
  1. COSENTYX [Suspect]
     Active Substance: SECUKINUMAB
     Indication: PSORIASIS
     Dosage: 300 MG, QMO
     Route: 058
     Dates: start: 20170617, end: 20180110

REACTIONS (5)
  - Peripheral swelling [Unknown]
  - Device difficult to use [Unknown]
  - Asthenia [Unknown]
  - Injection site pain [Unknown]
  - Blister [Unknown]

NARRATIVE: CASE EVENT DATE: 20180401
